FAERS Safety Report 20944934 (Version 1)
Quarter: 2022Q2

REPORT INFORMATION
  Report Type: Spontaneous
  Country: US (occurrence: US)
  Receive Date: 20220610
  Receipt Date: 20220610
  Transmission Date: 20220721
  Serious: No
  Sender: FDA-Public Use
  Company Number: US-ALKERMES INC.-ALK-2022-002704

PATIENT

DRUGS (1)
  1. LYBALVI [Suspect]
     Active Substance: OLANZAPINE\SAMIDORPHAN L-MALATE
     Indication: Bipolar I disorder
     Dosage: UNK UNK, QD
     Route: 048
     Dates: start: 20220506, end: 202205

REACTIONS (1)
  - Euphoric mood [Recovered/Resolved]

NARRATIVE: CASE EVENT DATE: 20220501
